FAERS Safety Report 22093099 (Version 1)
Quarter: 2023Q1

REPORT INFORMATION
  Report Type: Spontaneous
  Country: US (occurrence: US)
  Receive Date: 20230314
  Receipt Date: 20230314
  Transmission Date: 20230418
  Serious: No
  Sender: FDA-Public Use
  Company Number: US-LANNETT COMPANY, INC.-US-2022LAN000052

PATIENT

DRUGS (1)
  1. PANTOPRAZOLE SODIUM [Suspect]
     Active Substance: PANTOPRAZOLE SODIUM
     Indication: Product used for unknown indication
     Dosage: UNK
     Route: 065

REACTIONS (4)
  - Multiple allergies [Unknown]
  - Gastrointestinal tract irritation [Unknown]
  - Lactose intolerance [Unknown]
  - Gluten sensitivity [Unknown]
